FAERS Safety Report 19208314 (Version 1)
Quarter: 2021Q2

REPORT INFORMATION
  Report Type: Spontaneous
  Country: RU (occurrence: RU)
  Receive Date: 20210503
  Receipt Date: 20210503
  Transmission Date: 20210717
  Serious: Yes (Other)
  Sender: FDA-Public Use
  Company Number: RU-ASTRAZENECA-2021A348061

PATIENT
  Sex: Male

DRUGS (1)
  1. PULMICORT TURBUHALER [Suspect]
     Active Substance: BUDESONIDE
     Indication: SUBGLOTTIC LARYNGITIS
     Route: 055

REACTIONS (3)
  - Vomiting [Recovering/Resolving]
  - Motion sickness [Recovering/Resolving]
  - Drug ineffective [Unknown]
